FAERS Safety Report 13236765 (Version 1)
Quarter: 2017Q1

REPORT INFORMATION
  Report Type: Spontaneous
  Country: GB (occurrence: GB)
  Receive Date: 20170215
  Receipt Date: 20170215
  Transmission Date: 20170428
  Serious: Yes (Death, Hospitalization)
  Sender: FDA-Public Use
  Company Number: GB-ROCHE-1894239

PATIENT
  Age: 51 Year
  Sex: Male
  Weight: 84 kg

DRUGS (2)
  1. PIRFENIDONE [Suspect]
     Active Substance: PIRFENIDONE
     Indication: IDIOPATHIC PULMONARY FIBROSIS
     Route: 048
     Dates: start: 20150805
  2. MACROGOL [Concomitant]
     Active Substance: POLYETHYLENE GLYCOLS
     Route: 065

REACTIONS (9)
  - Colitis [Fatal]
  - Abdominal pain [Unknown]
  - Dyschezia [Unknown]
  - Diarrhoea haemorrhagic [Unknown]
  - Abdominal distension [Unknown]
  - Rectal haemorrhage [Unknown]
  - Pyrexia [Unknown]
  - Diarrhoea [Unknown]
  - Constipation [Unknown]
